FAERS Safety Report 10763915 (Version 3)
Quarter: 2015Q1

REPORT INFORMATION
  Report Type: Report from Study
  Country: AT (occurrence: AT)
  Receive Date: 20150204
  Receipt Date: 20150217
  Transmission Date: 20150721
  Serious: Yes (Death, Hospitalization, Other)
  Sender: FDA-Public Use
  Company Number: PHHY2013AT134604

PATIENT

DRUGS (8)
  1. DOMINAL FORTE [Concomitant]
     Active Substance: PROTHIPENDYL HYDROCHLORIDE
     Indication: SOMNOLENCE
     Route: 065
     Dates: start: 20140520
  2. STI571 [Suspect]
     Active Substance: IMATINIB MESYLATE
     Indication: CHRONIC MYELOID LEUKAEMIA
     Dosage: 200 MG, UNK
     Route: 048
     Dates: start: 20041202, end: 20041218
  3. NORVASC [Concomitant]
     Active Substance: AMLODIPINE BESYLATE
     Indication: HYPERTENSION
     Dosage: 5 MG, UNK
     Route: 048
     Dates: start: 20041105, end: 20141118
  4. PANTOLOC [Concomitant]
     Active Substance: PANTOPRAZOLE SODIUM
     Indication: PROPHYLAXIS
     Dosage: 20 MG, UNK
     Route: 048
     Dates: start: 20080811, end: 20141118
  5. LASIX [Concomitant]
     Active Substance: FUROSEMIDE
     Indication: OEDEMA PERIPHERAL
     Dosage: 20 MG, UNK
     Route: 048
     Dates: start: 20080811, end: 20141118
  6. LASIX [Concomitant]
     Active Substance: FUROSEMIDE
     Dosage: 80 MG, UNK
     Route: 042
     Dates: start: 20141120
  7. ERYPO [Concomitant]
     Indication: PRODUCT USED FOR UNKNOWN INDICATION
     Dosage: 2000 IE ON MON, WED, FRI
     Route: 065
     Dates: start: 20140109
  8. STI571 [Suspect]
     Active Substance: IMATINIB MESYLATE
     Dosage: 400 MG, UNK
     Route: 048
     Dates: start: 20041218, end: 20141118

REACTIONS (24)
  - Road traffic accident [Unknown]
  - Multiple injuries [Unknown]
  - Hypoacusis [Unknown]
  - Anaemia [Unknown]
  - Peripheral swelling [Unknown]
  - Beta 2 microglobulin increased [Unknown]
  - Infection [Unknown]
  - Pyrexia [Unknown]
  - Acute kidney injury [Fatal]
  - Vomiting [Unknown]
  - Pneumonia [Unknown]
  - Gastrointestinal disorder [Unknown]
  - Blood creatinine increased [Unknown]
  - Lacrimation increased [Unknown]
  - Rash generalised [Unknown]
  - Respiratory failure [Unknown]
  - Nervous system disorder [Unknown]
  - Soft tissue injury [Unknown]
  - General physical health deterioration [Fatal]
  - Renal disorder [Unknown]
  - Onychomycosis [Unknown]
  - Oedema peripheral [Unknown]
  - C-reactive protein increased [Unknown]
  - Fatigue [Unknown]

NARRATIVE: CASE EVENT DATE: 200503
